FAERS Safety Report 25423656 (Version 2)
Quarter: 2025Q3

REPORT INFORMATION
  Report Type: Spontaneous
  Country: US (occurrence: US)
  Receive Date: 20250611
  Receipt Date: 20250809
  Transmission Date: 20251020
  Serious: Yes (Death)
  Sender: ALEXION PHARMACEUTICALS
  Company Number: US-SA-2025SA162678

PATIENT
  Age: 3 Month

DRUGS (1)
  1. BEYFORTUS [Suspect]
     Active Substance: NIRSEVIMAB-ALIP
     Indication: Respiratory syncytial virus immunisation
     Route: 065
     Dates: start: 20231128, end: 20231128

REACTIONS (1)
  - Respiratory syncytial virus infection [Fatal]
